FAERS Safety Report 8163339-2 (Version None)
Quarter: 2012Q1

REPORT INFORMATION
  Report Type: 
  Country: None (occurrence: None)
  Receive Date: 20120224
  Receipt Date: 20120221
  Transmission Date: 20120608
  Serious: Yes (Disabling)
  Sender: FDA-Public Use
  Company Number: US-ABBOTT-12P-163-0906790-00

PATIENT
  Age: 15 Year
  Sex: Male
  Weight: 86.26 kg

DRUGS (5)
  1. OMNICEF [Suspect]
     Indication: BRONCHITIS
     Dates: start: 20111221, end: 20111227
  2. QVAR 40 [Concomitant]
     Indication: ASTHMA
  3. OMNICEF [Suspect]
     Indication: COUGH
  4. OMNICEF [Suspect]
     Indication: RESPIRATORY TRACT CONGESTION
  5. ALBUTEROL [Concomitant]
     Indication: ASTHMA

REACTIONS (4)
  - DYSKINESIA [None]
  - MUSCULOSKELETAL STIFFNESS [None]
  - TIC [None]
  - MUSCLE TIGHTNESS [None]
